FAERS Safety Report 4333576-3 (Version None)
Quarter: 2004Q1

REPORT INFORMATION
  Report Type: 
  Country: None (occurrence: None)
  Receive Date: 20040329
  Receipt Date: 20040211
  Transmission Date: 20041129
  Serious: No
  Sender: FDA-Public Use
  Company Number: 04P-163-0250038-00

PATIENT
  Age: 75 Year
  Sex: Female
  Weight: 58.0604 kg

DRUGS (3)
  1. HUMIRA [Suspect]
     Indication: RHEUMATOID ARTHRITIS
     Dosage: 40 MG, 1 IN 2 WK, SUBCUTANEOUS
     Route: 058
     Dates: start: 20030901
  2. AMLODIPINE BESYLATE [Concomitant]
  3. CONJUGATED ESTROGEN [Concomitant]

REACTIONS (1)
  - INJECTION SITE PAIN [None]
